FAERS Safety Report 5370643-X (Version None)
Quarter: 2007Q2

REPORT INFORMATION
  Report Type: 
  Country: None (occurrence: None)
  Receive Date: 20070618
  Receipt Date: 20060724
  Transmission Date: 20071010
  Serious: Yes (Life-Threatening, Hospitalization, Other)
  Sender: FDA-Public Use
  Company Number: PHEH2006US09197

PATIENT
  Age: 79 Year
  Sex: Male

DRUGS (6)
  1. GLEEVEC [Suspect]
     Indication: GASTROINTESTINAL STROMAL TUMOUR
     Dosage: 400 MG, QD, ORAL
     Route: 048
     Dates: start: 20060321, end: 20060623
  2. LASIX [Concomitant]
  3. HEPARIN [Concomitant]
  4. STOOL SOFTNER (DOCUSATE SODIUM) [Concomitant]
  5. SENNA GLYCOSIDES, COMBINATIONS (NO INGREDIENTS/SUBSTANCES) [Concomitant]
  6. ACETAMINOPHEN [Concomitant]

REACTIONS (27)
  - ABDOMINAL DISTENSION [None]
  - ASPIRATION PLEURAL CAVITY [None]
  - BLOOD ALKALINE PHOSPHATASE INCREASED [None]
  - BLOOD BILIRUBIN UNCONJUGATED INCREASED [None]
  - BLOOD CREATININE INCREASED [None]
  - CARDIAC FAILURE CONGESTIVE [None]
  - CARDIOMEGALY [None]
  - DECREASED APPETITE [None]
  - DYSPNOEA [None]
  - EJECTION FRACTION DECREASED [None]
  - EXERCISE TOLERANCE DECREASED [None]
  - HEPATIC CONGESTION [None]
  - HYPOTENSION [None]
  - KLEBSIELLA BACTERAEMIA [None]
  - MALIGNANT NEOPLASM PROGRESSION [None]
  - MITRAL VALVE INCOMPETENCE [None]
  - OEDEMA PERIPHERAL [None]
  - PERICARDIAL EFFUSION [None]
  - PLEURAL EFFUSION [None]
  - PULMONARY CONGESTION [None]
  - PULMONARY OEDEMA [None]
  - THROMBOCYTOPENIA [None]
  - TRANSAMINASES DECREASED [None]
  - TRICUSPID VALVE INCOMPETENCE [None]
  - URINARY TRACT INFECTION [None]
  - VENTRICULAR EXTRASYSTOLES [None]
  - VENTRICULAR HYPOKINESIA [None]
